FAERS Safety Report 5487156-7 (Version None)
Quarter: 2007Q4

REPORT INFORMATION
  Report Type: 
  Country: None (occurrence: None)
  Receive Date: 20071016
  Receipt Date: 20071004
  Transmission Date: 20080405
  Serious: Yes (Hospitalization)
  Sender: FDA-Public Use
  Company Number: US-ELI_LILLY_AND_COMPANY-US200710001745

PATIENT
  Sex: Female

DRUGS (1)
  1. FORTEO [Suspect]
     Indication: OSTEOPOROSIS
     Dosage: 20 UG, UNK
     Dates: start: 20070101

REACTIONS (7)
  - CEREBROVASCULAR ACCIDENT [None]
  - FALL [None]
  - GAIT DISTURBANCE [None]
  - INTERVERTEBRAL DISC DISORDER [None]
  - MENTAL IMPAIRMENT [None]
  - SPINAL FRACTURE [None]
  - THERAPEUTIC PROCEDURE [None]
